FAERS Safety Report 20470357 (Version 1)
Quarter: 2022Q1

REPORT INFORMATION
  Report Type: Spontaneous
  Country: US (occurrence: US)
  Receive Date: 20220214
  Receipt Date: 20220214
  Transmission Date: 20220424
  Serious: No
  Sender: FDA-Public Use
  Company Number: US-PFIZER INC-2021676533

PATIENT
  Age: 51 Year
  Sex: Female
  Weight: 59.864 kg

DRUGS (1)
  1. XELJANZ XR [Suspect]
     Active Substance: TOFACITINIB CITRATE
     Indication: Psoriatic arthropathy
     Dosage: 11 MG, 1X/DAY
     Route: 048
     Dates: start: 20210501, end: 2021

REACTIONS (3)
  - Fatigue [Unknown]
  - Tremor [Unknown]
  - Abdominal pain [Unknown]
